FAERS Safety Report 4501728-5 (Version None)
Quarter: 2004Q4

REPORT INFORMATION
  Report Type: 
  Country: None (occurrence: None)
  Receive Date: 20040927
  Receipt Date: 20040608
  Transmission Date: 20050328
  Serious: Yes (Hospitalization)
  Sender: FDA-Public Use
  Company Number: USA040669632

PATIENT
  Age: 14 Year
  Sex: Male
  Weight: 75 kg

DRUGS (2)
  1. STRATTERA [Suspect]
     Indication: ATTENTION DEFICIT/HYPERACTIVITY DISORDER
     Dosage: 80 MG
     Dates: start: 20031001, end: 20040520
  2. WELLBUTRIN [Concomitant]

REACTIONS (3)
  - BRONCHITIS [None]
  - DRUG HYPERSENSITIVITY [None]
  - MOOD SWINGS [None]
